FAERS Safety Report 10589849 (Version 2)
Quarter: 2015Q2

REPORT INFORMATION
  Report Type: Spontaneous
  Country: US (occurrence: US)
  Receive Date: 20141118
  Receipt Date: 20150514
  Transmission Date: 20150821
  Serious: Yes (Death, Hospitalization, Other)
  Sender: FDA-Public Use
  Company Number: US-CELGENE-USA-2014112101

PATIENT
  Age: 70 Year
  Sex: Male

DRUGS (1)
  1. POMALYST [Suspect]
     Active Substance: POMALIDOMIDE
     Indication: PLASMA CELL MYELOMA
     Dosage: 3 MILLIGRAM
     Route: 048
     Dates: start: 201404, end: 2014

REACTIONS (4)
  - Cardiac failure congestive [Fatal]
  - Syncope [Unknown]
  - Cardiac arrest [Fatal]
  - Renal failure [Unknown]

NARRATIVE: CASE EVENT DATE: 2014
